FAERS Safety Report 7282306-4 (Version None)
Quarter: 2011Q1

REPORT INFORMATION
  Report Type: 
  Country: None (occurrence: None)
  Receive Date: 20110209
  Receipt Date: 20110131
  Transmission Date: 20110831
  Serious: Yes (Disabling, Other)
  Sender: FDA-Public Use
  Company Number: US-PFIZER INC-2011023092

PATIENT
  Sex: Male

DRUGS (3)
  1. PREDNISONE [Suspect]
  2. LIPITOR [Suspect]
     Dosage: UNK
     Dates: start: 20040101
  3. METHOTREXATE [Suspect]

REACTIONS (3)
  - INCLUSION BODY MYOSITIS [None]
  - DIABETES MELLITUS [None]
  - POLYMYOSITIS [None]
